FAERS Safety Report 6500528-4 (Version None)
Quarter: 2009Q4

REPORT INFORMATION
  Report Type: 
  Country: None (occurrence: None)
  Receive Date: 20091216
  Receipt Date: 20091207
  Transmission Date: 20100525
  Serious: Yes (Other)
  Sender: FDA-Public Use
  Company Number: GXKR2009ES13185

PATIENT
  Age: 52 Year
  Sex: Female

DRUGS (3)
  1. ACETYLSALICYLIC ACID SRT [Suspect]
     Indication: ACUTE CORONARY SYNDROME
     Route: 065
  2. CLOPIDOGREL (NGX) [Suspect]
     Indication: ACUTE CORONARY SYNDROME
     Route: 065
  3. DEXIBUPROFEN [Concomitant]
     Indication: ACUTE CORONARY SYNDROME
     Route: 065

REACTIONS (1)
  - OPERATIVE HAEMORRHAGE [None]
